FAERS Safety Report 4650913-0 (Version None)
Quarter: 2005Q2

REPORT INFORMATION
  Report Type: 
  Country: None (occurrence: None)
  Receive Date: 20050426
  Receipt Date: 20050412
  Transmission Date: 20051028
  Serious: Yes (Life-Threatening, Hospitalization)
  Sender: FDA-Public Use
  Company Number: THYM-10443

PATIENT
  Age: 40 Year
  Sex: Male
  Weight: 98.1 kg

DRUGS (10)
  1. THYMOGLOBULIN [Suspect]
     Indication: RENAL TRANSPLANT
     Dosage: 125 MG QD IV
     Route: 042
     Dates: start: 20050125, end: 20050125
  2. VANCOMYCIN [Concomitant]
  3. LEVAQUIN [Concomitant]
  4. ACYCLOVIR [Concomitant]
  5. MYCELEX [Concomitant]
  6. SEPTRA [Concomitant]
  7. CELLCEPT [Concomitant]
  8. PREDNISONE [Concomitant]
  9. TACROLIMUS [Concomitant]
  10. METHYLPREDNISOLONE [Concomitant]

REACTIONS (3)
  - DRUG HYPERSENSITIVITY [None]
  - DYSPNOEA [None]
  - OXYGEN SATURATION DECREASED [None]
